FAERS Safety Report 5826219-0 (Version None)
Quarter: 2008Q3

REPORT INFORMATION
  Report Type: 
  Country: None (occurrence: None)
  Receive Date: 20080729
  Receipt Date: 20080718
  Transmission Date: 20090109
  Serious: Yes (Other)
  Sender: FDA-Public Use
  Company Number: US-PFIZER INC-2005032390

PATIENT
  Sex: Male
  Weight: 67.1 kg

DRUGS (8)
  1. DETROL LA [Suspect]
     Indication: POLLAKIURIA
     Route: 048
  2. DETROL LA [Suspect]
     Indication: HYPERTONIC BLADDER
  3. DARIFENACIN [Suspect]
     Indication: HYPERTONIC BLADDER
  4. ALL OTHER THERAPEUTIC PRODUCTS [Suspect]
     Indication: HYPERTONIC BLADDER
  5. TAMSULOSIN HCL [Concomitant]
     Route: 048
  6. PREVACID [Concomitant]
     Route: 048
  7. PANCREASE [Concomitant]
     Route: 048
  8. NASACORT [Concomitant]
     Route: 045

REACTIONS (9)
  - ADVERSE REACTION [None]
  - CATARACT [None]
  - DIZZINESS [None]
  - DRUG INEFFECTIVE [None]
  - DRY MOUTH [None]
  - DRY THROAT [None]
  - HEADACHE [None]
  - NAUSEA [None]
  - NOCTURIA [None]
